FAERS Safety Report 4944883-5 (Version None)
Quarter: 2006Q1

REPORT INFORMATION
  Report Type: 
  Country: None (occurrence: None)
  Receive Date: 20060315
  Receipt Date: 20060302
  Transmission Date: 20060701
  Serious: Yes (Disabling)
  Sender: FDA-Public Use
  Company Number: AT-MERCK-0603AUT00004

PATIENT
  Age: 61 Year
  Sex: Male

DRUGS (1)
  1. PROSCAR [Suspect]
     Route: 048
     Dates: start: 20021101, end: 20051101

REACTIONS (3)
  - EMOTIONAL DISTRESS [None]
  - ERECTILE DYSFUNCTION [None]
  - INCONTINENCE [None]
